FAERS Safety Report 9263163 (Version 1)
Quarter: 2013Q2

REPORT INFORMATION
  Report Type: Spontaneous
  Country: DE (occurrence: None)
  Receive Date: 20130429
  Receipt Date: 20130429
  Transmission Date: 20140414
  Serious: Yes (Life-Threatening, Hospitalization, Disabling, Other)
  Sender: FDA-Public Use
  Company Number: AUR-APL-2013-03226

PATIENT
  Age: 59 Year
  Sex: Male

DRUGS (9)
  1. RAMIPRIL (RAMIPRIL) [Suspect]
     Indication: PRODUCT USED FOR UNKNOWN INDICATION
     Route: 048
     Dates: start: 20120715
  2. ATORVASTATIN CALCIUM (ATORVASTATIN CALCIUM) [Suspect]
     Indication: PRODUCT USED FOR UNKNOWN INDICATION
     Route: 048
  3. BRILIQUE [Suspect]
     Indication: MYOCARDIAL INFARCTION
     Dosage: TWO DOSES OF 90 MG PER DAY TOTALING 180 MG.
     Route: 048
     Dates: start: 20120714
  4. EZETROL [Suspect]
     Indication: PRODUCT USED FOR UNKNOWN INDICATION
     Route: 048
     Dates: start: 20120715
  5. CARMEN [Suspect]
     Indication: PRODUCT USED FOR UNKNOWN INDICATION
     Route: 048
     Dates: start: 20120715
  6. ACETYLSALICYLIC ACID (ACETYLSALICYLIC ACID) [Concomitant]
  7. METOPROLOL (METOPROLOL) [Concomitant]
  8. PANTOPRAZOLE (PANTOPRAZOLE) [Concomitant]
  9. FUROSEMIDE (FUROSEMIDE) [Concomitant]

REACTIONS (8)
  - Acute coronary syndrome [None]
  - Acute myocardial infarction [None]
  - Cardiac failure [None]
  - Fatigue [None]
  - Pruritus [None]
  - Cholestasis [None]
  - Hepatomegaly [None]
  - Acute hepatic failure [None]
